FAERS Safety Report 6431633-9 (Version None)
Quarter: 2009Q4

REPORT INFORMATION
  Report Type: 
  Country: None (occurrence: None)
  Receive Date: 20091103
  Receipt Date: 20091019
  Transmission Date: 20100525
  Serious: Yes (Death)
  Sender: FDA-Public Use
  Company Number: AUR-APL-2009-00983                          AUR-APL-2009-00983

PATIENT
  Age: 34 Year
  Sex: Male
  Weight: 123 kg

DRUGS (12)
  1. MIRTAZAPINE [Suspect]
     Dosage: 30MG - DAILY - ORAL
     Route: 048
  2. AMISULPRIDE [Suspect]
     Dosage: 400MG - DAILY - ORAL
     Route: 048
  3. ATROPINE [Concomitant]
  4. BECLOMETHASONE DIPROPIONATE [Concomitant]
  5. DILTIAZEM HCL [Concomitant]
  6. FYBOGEL [Concomitant]
  7. HALOPERIDOL [Concomitant]
  8. HYOSCINE HBR HYT [Concomitant]
  9. LISINOPRIL [Concomitant]
  10. METOPROLOL [Concomitant]
  11. SENNA [Concomitant]
  12. CLOZAPINE [Suspect]
     Indication: SCHIZOPHRENIA
     Dosage: 450MG - DIVIDED DAILY - ORAL
     Route: 048
     Dates: start: 20070411, end: 20090422

REACTIONS (2)
  - DEEP VEIN THROMBOSIS [None]
  - PULMONARY EMBOLISM [None]
